FAERS Safety Report 5491145-6 (Version None)
Quarter: 2007Q4

REPORT INFORMATION
  Report Type: 
  Country: None (occurrence: None)
  Receive Date: 20071019
  Receipt Date: 20071009
  Transmission Date: 20080405
  Serious: Yes (Hospitalization, Other)
  Sender: FDA-Public Use
  Company Number: ES-PFIZER INC-2007084649

PATIENT
  Age: 78 Year
  Sex: Male

DRUGS (1)
  1. CABERGOLINE [Suspect]
     Indication: PARKINSONISM
     Route: 048

REACTIONS (9)
  - AKINESIA [None]
  - INSOMNIA [None]
  - MUSCULOSKELETAL STIFFNESS [None]
  - PLEURAL EFFUSION [None]
  - PNEUMONITIS [None]
  - SEROSITIS [None]
  - SKIN DISORDER [None]
  - TREMOR [None]
  - VENOUS STASIS [None]
